FAERS Safety Report 20808219 (Version 1)
Quarter: 2022Q2

REPORT INFORMATION
  Report Type: Spontaneous
  Country: US (occurrence: US)
  Receive Date: 20220510
  Receipt Date: 20220510
  Transmission Date: 20220721
  Serious: Yes (Other)
  Sender: FDA-Public Use
  Company Number: US-PFIZER INC-202101320679

PATIENT
  Age: 55 Year
  Sex: Male

DRUGS (1)
  1. GLIPIZIDE [Suspect]
     Active Substance: GLIPIZIDE
     Dosage: UNK

REACTIONS (6)
  - Accidental overdose [Unknown]
  - Seizure [Unknown]
  - Hypoglycaemia [Unknown]
  - Hypoxia [Unknown]
  - Brain injury [Unknown]
  - Disinhibition [Unknown]
